FAERS Safety Report 4657011-0 (Version None)
Quarter: 2005Q2

REPORT INFORMATION
  Report Type: 
  Country: None (occurrence: None)
  Receive Date: 20050506
  Receipt Date: 20030627
  Transmission Date: 20051028
  Serious: Yes (Other)
  Sender: FDA-Public Use
  Company Number: A96

PATIENT
  Sex: Male

DRUGS (1)
  1. ALBUTEROL SULFATE [Suspect]
     Dosage: 3 ML 1 INHALATION
     Route: 055
     Dates: start: 20030626

REACTIONS (1)
  - PHARYNGITIS [None]
